FAERS Safety Report 5785160-2 (Version None)
Quarter: 2008Q2

REPORT INFORMATION
  Report Type: 
  Country: None (occurrence: None)
  Receive Date: 20080624
  Receipt Date: 20070521
  Transmission Date: 20081010
  Serious: No
  Sender: FDA-Public Use
  Company Number: US-ASTRAZENECA-2007UW12607

PATIENT
  Sex: Female

DRUGS (2)
  1. PULMICORT RESPULES [Suspect]
     Dosage: BID
     Route: 055
     Dates: start: 20070514
  2. IPRATROPIUM BROMIDE [Concomitant]

REACTIONS (1)
  - MUSCLE SPASMS [None]
